FAERS Safety Report 4640510-5 (Version None)
Quarter: 2005Q2

REPORT INFORMATION
  Report Type: 
  Country: None (occurrence: None)
  Receive Date: 20050420
  Receipt Date: 20050218
  Transmission Date: 20051028
  Serious: Yes (Other)
  Sender: FDA-Public Use
  Company Number: PHBS2005JP02427

PATIENT
  Age: 80 Year
  Sex: Male

DRUGS (3)
  1. LAMISIL [Suspect]
     Indication: NAIL TINEA
     Dosage: UNK, UNK
     Route: 048
     Dates: start: 20041027
  2. EXCELASE [Concomitant]
     Route: 031
  3. DEPAS [Concomitant]
     Route: 031

REACTIONS (2)
  - DIPLOPIA [None]
  - INTRAOCULAR PRESSURE INCREASED [None]
